FAERS Safety Report 4331823-5 (Version None)
Quarter: 2004Q2

REPORT INFORMATION
  Report Type: 
  Country: None (occurrence: None)
  Receive Date: 20040405
  Receipt Date: 20031027
  Transmission Date: 20050107
  Serious: No
  Sender: FDA-Public Use
  Company Number: US-GLAXOSMITHKLINE-A0431744A

PATIENT
  Age: 53 Year
  Sex: Female

DRUGS (1)
  1. FLOVENT [Suspect]
     Dosage: 44MCG UNKNOWN
     Route: 055

REACTIONS (2)
  - FEELING ABNORMAL [None]
  - PHARMACEUTICAL PRODUCT COMPLAINT [None]
